FAERS Safety Report 24293112 (Version 1)
Quarter: 2024Q3

REPORT INFORMATION
  Report Type: Spontaneous
  Country: US (occurrence: None)
  Receive Date: 20240906
  Receipt Date: 20240906
  Transmission Date: 20241016
  Serious: No
  Sender: DOMPE FARMACEUTICI
  Company Number: US-FARMAPROD-202308-202311-3484

PATIENT
  Age: 69 Year
  Sex: Male

DRUGS (18)
  1. OXERVATE [Suspect]
     Active Substance: CENEGERMIN-BKBJ
     Indication: Neurotrophic keratopathy
     Route: 047
     Dates: start: 20231030
  2. TOBRADEX [Concomitant]
     Active Substance: DEXAMETHASONE\TOBRAMYCIN
     Dosage: 0.3 %-0.1%
  3. TRULICITY [Concomitant]
     Active Substance: DULAGLUTIDE
     Dosage: 0.75MG/0.5 PEN INJECTOR
     Route: 058
  4. EFFEXOR XR [Concomitant]
     Active Substance: VENLAFAXINE HYDROCHLORIDE
  5. GLUCOTROL XL [Concomitant]
     Active Substance: GLIPIZIDE
  6. INDERAL LA [Concomitant]
     Active Substance: PROPRANOLOL HYDROCHLORIDE
  7. LASIX [Concomitant]
     Active Substance: FUROSEMIDE
  8. VALTREX [Concomitant]
     Active Substance: VALACYCLOVIR HYDROCHLORIDE
  9. GLYXAMBI [Concomitant]
     Active Substance: EMPAGLIFLOZIN\LINAGLIPTIN
  10. OXYBUTYNIN CHLORIDE [Concomitant]
     Active Substance: OXYBUTYNIN CHLORIDE
  11. TRAZODONE HYDROCHLORIDE [Concomitant]
     Active Substance: TRAZODONE HYDROCHLORIDE
  12. LIPITOR [Concomitant]
     Active Substance: ATORVASTATIN CALCIUM
  13. NEXIUM [Concomitant]
     Active Substance: ESOMEPRAZOLE MAGNESIUM
  14. VASOTEC [Concomitant]
     Active Substance: ENALAPRIL MALEATE
  15. ASPIRIN [Concomitant]
     Active Substance: ASPIRIN
  16. METFORMIN [Concomitant]
     Active Substance: METFORMIN HYDROCHLORIDE
     Dosage: EXTENDED-RELEASE OSMOTIC
  17. IBUPROFEN [Concomitant]
     Active Substance: IBUPROFEN
  18. TYLENOL ARTHRITIS PAIN [Concomitant]
     Active Substance: ACETAMINOPHEN

REACTIONS (2)
  - Blood glucose increased [Unknown]
  - Eye pain [Unknown]

NARRATIVE: CASE EVENT DATE: 20231101
